FAERS Safety Report 9336901 (Version 3)
Quarter: 2013Q4

REPORT INFORMATION
  Report Type: Spontaneous
  Country: GB (occurrence: GB)
  Receive Date: 20130607
  Receipt Date: 20131111
  Transmission Date: 20140711
  Serious: Yes (Hospitalization, Other)
  Sender: FDA-Public Use
  Company Number: GB-BRISTOL-MYERS SQUIBB COMPANY-18977579

PATIENT
  Age: 76 Year
  Sex: Male
  Weight: 105 kg

DRUGS (8)
  1. METFORMIN HCL [Suspect]
  2. ASPIRIN [Concomitant]
  3. BISOPROLOL [Concomitant]
     Dates: start: 20130405, end: 20130513
  4. DOXYCYCLINE [Concomitant]
     Dates: start: 20130306, end: 20130313
  5. LANSOPRAZOLE [Concomitant]
     Dates: start: 20130415, end: 20130513
  6. PREDNISOLONE [Concomitant]
     Dates: start: 20130306, end: 20130311
  7. RAMIPRIL [Concomitant]
     Dosage: 13FEB13-13MAR13:28DAYS?15APR13-13MAY13::28DAYS
     Dates: start: 20130213, end: 20130513
  8. SIMVASTATIN [Concomitant]
     Dates: start: 20130415, end: 20130513

REACTIONS (5)
  - Renal impairment [Recovering/Resolving]
  - Jaundice [Recovering/Resolving]
  - Liver function test abnormal [Recovering/Resolving]
  - Diarrhoea [Recovered/Resolved]
  - Pruritus [Recovered/Resolved]
